FAERS Safety Report 5103504-1 (Version None)
Quarter: 2006Q3

REPORT INFORMATION
  Report Type: 
  Country: None (occurrence: None)
  Receive Date: 20060731
  Receipt Date: 20060131
  Transmission Date: 20061208
  Serious: Yes (Other)
  Sender: FDA-Public Use
  Company Number: US-JNJFOC-20051105079

PATIENT
  Age: 53 Year
  Sex: Male

DRUGS (4)
  1. RISPERDAL [Suspect]
     Indication: SCHIZOPHRENIA
     Dosage: 50 MG, 1 IN 2 WEEK, INJECTION
  2. HALDOL [Concomitant]
  3. COGENTIN [Concomitant]
  4. BENADRYL [Concomitant]

REACTIONS (2)
  - LOSS OF CONSCIOUSNESS [None]
  - PLATELET COUNT DECREASED [None]
